FAERS Safety Report 5809579-6 (Version None)
Quarter: 2008Q3

REPORT INFORMATION
  Report Type: 
  Country: None (occurrence: None)
  Receive Date: 20080709
  Receipt Date: 20080625
  Transmission Date: 20090109
  Serious: Yes (Hospitalization)
  Sender: FDA-Public Use
  Company Number: CAP08000214

PATIENT
  Sex: Female

DRUGS (1)
  1. ACTONEL [Suspect]
     Indication: OSTEOPOROSIS
     Dosage: ORAL
     Route: 048
     Dates: start: 20050101

REACTIONS (6)
  - CHEST PAIN [None]
  - CONCUSSION [None]
  - GAIT DISTURBANCE [None]
  - MALAISE [None]
  - OESOPHAGEAL PAIN [None]
  - SUBDURAL HAEMATOMA [None]
